FAERS Safety Report 24012930 (Version 1)
Quarter: 2024Q2

REPORT INFORMATION
  Report Type: Spontaneous
  Country: US (occurrence: US)
  Receive Date: 20240626
  Receipt Date: 20240626
  Transmission Date: 20240717
  Serious: No
  Sender: FDA-Public Use
  Company Number: None

PATIENT
  Age: 17 Year
  Sex: Female

DRUGS (6)
  1. ETHINYL ESTRADIOL\LEVONORGESTREL [Suspect]
     Active Substance: ETHINYL ESTRADIOL\LEVONORGESTREL
     Indication: Product used for unknown indication
  2. CLOZAPINE [Suspect]
     Active Substance: CLOZAPINE
     Indication: Schizophrenia
     Dosage: AT BEDTIME
  3. CLOZAPINE [Suspect]
     Active Substance: CLOZAPINE
     Dosage: ONCE A DOSE OF 150 MG AT BEDTIME
  4. CLOZAPINE [Suspect]
     Active Substance: CLOZAPINE
     Dosage: INCREASED BY 25 MG APPROXIMATELY EVERY 4 DAYS
  5. MELATONIN [Concomitant]
     Active Substance: MELATONIN
     Indication: Product used for unknown indication
     Dosage: AT BEDTIME
  6. POLYETHYLENE GLYCOL [Concomitant]
     Active Substance: POLYETHYLENE GLYCOL
     Indication: Constipation
     Dosage: AS NEEDED FOR CONSTIPATION

REACTIONS (6)
  - Drug interaction [Recovering/Resolving]
  - Weight increased [Recovering/Resolving]
  - Increased appetite [Recovering/Resolving]
  - Fatigue [Recovering/Resolving]
  - Constipation [Recovering/Resolving]
  - Antipsychotic drug level increased [Recovering/Resolving]
